FAERS Safety Report 25764572 (Version 1)
Quarter: 2025Q3

REPORT INFORMATION
  Report Type: Spontaneous
  Country: US (occurrence: US)
  Receive Date: 20250905
  Receipt Date: 20250905
  Transmission Date: 20251020
  Serious: No
  Sender: DOMPE FARMACEUTICI
  Company Number: US-FARMAPROD-202501-0216

PATIENT
  Sex: Male
  Weight: 64.86 kg

DRUGS (25)
  1. OXERVATE [Suspect]
     Active Substance: CENEGERMIN-BKBJ
     Indication: Neurotrophic keratopathy
     Route: 047
     Dates: start: 20241226
  2. OXERVATE [Suspect]
     Active Substance: CENEGERMIN-BKBJ
     Indication: Ulcerative keratitis
  3. VITAMIN B3 [Concomitant]
     Active Substance: NIACIN
  4. MAGNESIUM [Concomitant]
     Active Substance: MAGNESIUM
  5. CALCIUM 250-VIT D3 [Concomitant]
  6. MENAQUINONE 6 [Concomitant]
     Active Substance: MENAQUINONE 6
  7. ERYTHROMYCIN [Concomitant]
     Active Substance: ERYTHROMYCIN
  8. MIEBO [Concomitant]
     Active Substance: PERFLUOROHEXYLOCTANE
  9. EZETIMIBE [Concomitant]
     Active Substance: EZETIMIBE
  10. BRIMONIDINE TARTRATE-TIMOLOL [Concomitant]
  11. SIMVASTATIN [Concomitant]
     Active Substance: SIMVASTATIN
  12. TORSEMIDE [Concomitant]
     Active Substance: TORSEMIDE
  13. GEMTESA [Concomitant]
     Active Substance: VIBEGRON
  14. ALENDRONATE SODIUM [Concomitant]
     Active Substance: ALENDRONATE SODIUM
  15. PANTOPRAZOLE SODIUM [Concomitant]
     Active Substance: PANTOPRAZOLE SODIUM
  16. ENTRESTO [Concomitant]
     Active Substance: SACUBITRIL\VALSARTAN
  17. ALBUTEROL SULFATE [Concomitant]
     Active Substance: ALBUTEROL SULFATE
  18. ZOLPIDEM TARTRATE [Concomitant]
     Active Substance: ZOLPIDEM TARTRATE
  19. SPIRONOLACTONE [Concomitant]
     Active Substance: SPIRONOLACTONE
  20. PREDNISOLONE ACETATE [Concomitant]
     Active Substance: PREDNISOLONE ACETATE
  21. METOPROLOL SUCCINATE [Concomitant]
     Active Substance: METOPROLOL SUCCINATE
  22. BRINZOLAMIDE [Concomitant]
     Active Substance: BRINZOLAMIDE
  23. JARDIANCE [Concomitant]
     Active Substance: EMPAGLIFLOZIN
  24. ELIQUIS [Concomitant]
     Active Substance: APIXABAN
  25. AZELASTINE HYDROCHLORIDE\FLUTICASONE PROPIONATE [Concomitant]
     Active Substance: AZELASTINE HYDROCHLORIDE\FLUTICASONE PROPIONATE

REACTIONS (2)
  - Sleep disorder [Unknown]
  - Ocular hyperaemia [Unknown]
